FAERS Safety Report 7192135-8 (Version None)
Quarter: 2010Q4

REPORT INFORMATION
  Report Type: 
  Country: None (occurrence: None)
  Receive Date: 20101203
  Receipt Date: 20101201
  Transmission Date: 20110411
  Serious: Yes (Death, Hospitalization)
  Sender: FDA-Public Use
  Company Number: 2010SP062504

PATIENT
  Age: 75 Year
  Weight: 75 kg

DRUGS (7)
  1. TEMOZOLOMIDE [Suspect]
     Indication: GLIOBLASTOMA MULTIFORME
     Dosage: 75 MG/M2;QD;PO ; 150 MG/M2;QD;PO
     Route: 048
     Dates: start: 20100907, end: 20100927
  2. TEMOZOLOMIDE [Suspect]
     Indication: GLIOBLASTOMA MULTIFORME
     Dosage: 75 MG/M2;QD;PO ; 150 MG/M2;QD;PO
     Route: 048
     Dates: start: 20101028, end: 20101101
  3. KEPPRA [Concomitant]
  4. MEDROL [Concomitant]
  5. EMCONCOR [Concomitant]
  6. ITRACONAZOLE [Concomitant]
  7. OMEPRAZOLE [Concomitant]

REACTIONS (1)
  - BRONCHOPULMONARY ASPERGILLOSIS [None]
